FAERS Safety Report 18464930 (Version 1)
Quarter: 2020Q4

REPORT INFORMATION
  Report Type: Spontaneous
  Country: PL (occurrence: PL)
  Receive Date: 20201104
  Receipt Date: 20201104
  Transmission Date: 20210114
  Serious: Yes (Other)
  Sender: FDA-Public Use
  Company Number: PL-ELI_LILLY_AND_COMPANY-PL202010011536

PATIENT
  Sex: Male

DRUGS (3)
  1. ZYPADHERA [Suspect]
     Active Substance: OLANZAPINE PAMOATE
     Indication: SCHIZOPHRENIA
     Dosage: 1 DOSAGE FORM, UNKNOWN
     Route: 030
     Dates: start: 20180628, end: 20180628
  2. ZYPADHERA [Suspect]
     Active Substance: OLANZAPINE PAMOATE
     Indication: SCHIZOPHRENIA
     Dosage: 1 DOSAGE FORM, UNKNOWN
     Route: 030
     Dates: start: 20180628, end: 20180628
  3. ZYPADHERA [Suspect]
     Active Substance: OLANZAPINE PAMOATE
     Indication: SCHIZOPHRENIA
     Dosage: 1 DOSAGE FORM, UNKNOWN
     Route: 030
     Dates: start: 20180628, end: 20180628

REACTIONS (4)
  - Anxiety [Recovered/Resolved]
  - Disorientation [Recovered/Resolved]
  - Cognitive disorder [Recovered/Resolved]
  - Speech disorder [Recovered/Resolved]

NARRATIVE: CASE EVENT DATE: 20180628
